FAERS Safety Report 9359055 (Version 3)
Quarter: 2014Q1

REPORT INFORMATION
  Report Type: Spontaneous
  Country: US (occurrence: US)
  Receive Date: 20130620
  Receipt Date: 20140320
  Transmission Date: 20141002
  Serious: Yes (Hospitalization)
  Sender: FDA-Public Use
  Company Number: US-B.I. PHARMACEUTICALS,INC./RIDGEFIELD-2013-BI-17404BP

PATIENT
  Sex: Female
  Weight: 100.7 kg

DRUGS (4)
  1. PRADAXA [Suspect]
     Indication: ATRIAL FIBRILLATION
     Dosage: 300 MG
     Route: 048
     Dates: start: 20110327, end: 20120401
  2. METOPROLOL [Concomitant]
     Route: 065
  3. PERCOCET [Concomitant]
     Route: 065
  4. OXYBUTYNIN [Concomitant]
     Route: 065

REACTIONS (1)
  - Gastrointestinal haemorrhage [Unknown]
